FAERS Safety Report 13430425 (Version 1)
Quarter: 2017Q2

REPORT INFORMATION
  Report Type: Spontaneous
  Country: US (occurrence: US)
  Receive Date: 20170412
  Receipt Date: 20170412
  Transmission Date: 20170830
  Serious: No
  Sender: FDA-Public Use
  Company Number: US-PFIZER INC-2017152585

PATIENT
  Age: 57 Year
  Sex: Male

DRUGS (1)
  1. SUTENT [Suspect]
     Active Substance: SUNITINIB MALATE
     Indication: RENAL CANCER
     Dosage: 50 MG, UNK (20 DAY CYCLE)
     Route: 048
     Dates: start: 20170329

REACTIONS (8)
  - Blood pressure increased [Unknown]
  - Arthralgia [Unknown]
  - Acne [Unknown]
  - Rhinorrhoea [Unknown]
  - Fatigue [Unknown]
  - Myalgia [Unknown]
  - Jaundice [Unknown]
  - Dyspnoea [Unknown]
